FAERS Safety Report 11216221 (Version 1)
Quarter: 2015Q2

REPORT INFORMATION
  Report Type: Spontaneous
  Country: US (occurrence: None)
  Receive Date: 20150623
  Receipt Date: 20150623
  Transmission Date: 20150821
  Serious: Yes (Other)
  Sender: FDA-Public Use
  Company Number: None

PATIENT
  Age: 63 Year
  Sex: Female
  Weight: 81.65 kg

DRUGS (4)
  1. ICY HOT [Suspect]
     Active Substance: MENTHOL\METHYL SALICYLATE
     Indication: BACK PAIN
     Dosage: APPLIED TO A SURFACE, USUALLY THE SKIN
     Dates: start: 20150519, end: 20150519
  2. LORAZEPAM. [Concomitant]
     Active Substance: LORAZEPAM
  3. LEXIPRO [Concomitant]
  4. ICY HOT [Suspect]
     Active Substance: MENTHOL\METHYL SALICYLATE
     Indication: ARTHRALGIA
     Dosage: APPLIED TO A SURFACE, USUALLY THE SKIN
     Dates: start: 20150519, end: 20150519

REACTIONS (2)
  - Skin discolouration [None]
  - Application site pain [None]

NARRATIVE: CASE EVENT DATE: 20150519
